FAERS Safety Report 5471156-7 (Version None)
Quarter: 2007Q3

REPORT INFORMATION
  Report Type: 
  Country: None (occurrence: None)
  Receive Date: 20070928
  Receipt Date: 20070919
  Transmission Date: 20080115
  Serious: Yes (Other)
  Sender: FDA-Public Use
  Company Number: BE-ROCHE-519987

PATIENT
  Sex: Female

DRUGS (2)
  1. ISOTRETINOIN [Suspect]
     Indication: ACNE
     Route: 048
  2. ISOTRETINOIN [Suspect]
     Route: 048
     Dates: start: 20030101, end: 20070101

REACTIONS (1)
  - AUTOIMMUNE THYROIDITIS [None]
